FAERS Safety Report 9341308 (Version 1)
Quarter: 2013Q2

REPORT INFORMATION
  Report Type: Spontaneous
  Country: US (occurrence: None)
  Receive Date: 20130610
  Receipt Date: 20130610
  Transmission Date: 20140414
  Serious: Yes (Hospitalization)
  Sender: FDA-Public Use
  Company Number: None

PATIENT
  Age: 40 Year
  Sex: Female

DRUGS (1)
  1. TAXOTERE [Suspect]
     Indication: INVASIVE DUCTAL BREAST CARCINOMA
     Dosage: Q21 DAYS
     Route: 042
     Dates: start: 20120912, end: 20121226

REACTIONS (1)
  - Diarrhoea [None]
